FAERS Safety Report 16807733 (Version 1)
Quarter: 2019Q3

REPORT INFORMATION
  Report Type: Spontaneous
  Country: PL (occurrence: PL)
  Receive Date: 20190915
  Receipt Date: 20190915
  Transmission Date: 20191005
  Serious: Yes (Other)
  Sender: FDA-Public Use
  Company Number: PL-JNJFOC-20190907046

PATIENT
  Age: 35 Year
  Sex: Female

DRUGS (2)
  1. IMATINIB. [Suspect]
     Active Substance: IMATINIB MESYLATE
     Indication: CHRONIC MYELOID LEUKAEMIA
     Dosage: 400 MG, QD, REINTRODUCTION
     Route: 065
     Dates: start: 200505
  2. PARACETAMOL [Suspect]
     Active Substance: ACETAMINOPHEN
     Indication: NASOPHARYNGITIS
     Route: 065

REACTIONS (9)
  - Jaundice [Unknown]
  - Anaemia [Unknown]
  - Leukocytosis [Unknown]
  - Splenomegaly [Unknown]
  - Drug intolerance [Unknown]
  - Hepatotoxicity [Unknown]
  - Blood bilirubin increased [Unknown]
  - Therapy non-responder [Unknown]
  - Transaminases increased [Unknown]

NARRATIVE: CASE EVENT DATE: 200602
